FAERS Safety Report 6765372-1 (Version None)
Quarter: 2010Q2

REPORT INFORMATION
  Report Type: 
  Country: None (occurrence: None)
  Receive Date: 20100611
  Receipt Date: 20100609
  Transmission Date: 20101027
  Serious: Yes (Other)
  Sender: FDA-Public Use
  Company Number: US-JNJFOC-20100504174

PATIENT
  Sex: Male
  Weight: 120.2 kg

DRUGS (2)
  1. LEVAQUIN [Suspect]
     Indication: UPPER RESPIRATORY TRACT INFECTION
     Route: 048
  2. UNKNOWN MEDICATION [Concomitant]
     Indication: COUGH
     Route: 048

REACTIONS (2)
  - MUSCLE ATROPHY [None]
  - TENDON RUPTURE [None]
